FAERS Safety Report 8071701-1 (Version None)
Quarter: 2012Q1

REPORT INFORMATION
  Report Type: 
  Country: None (occurrence: None)
  Receive Date: 20120125
  Receipt Date: 20120118
  Transmission Date: 20120608
  Serious: Yes (Hospitalization)
  Sender: FDA-Public Use
  Company Number: US-AMGEN-USASP2012003546

PATIENT
  Sex: Female

DRUGS (1)
  1. PROLIA [Suspect]
     Indication: OSTEOPOROSIS POSTMENOPAUSAL
     Dosage: 60 MG, Q6MO
     Dates: start: 20110830

REACTIONS (6)
  - SYNCOPE [None]
  - BACK PAIN [None]
  - HIP FRACTURE [None]
  - GAIT DISTURBANCE [None]
  - DECREASED VIBRATORY SENSE [None]
  - TREMOR [None]
